FAERS Safety Report 22075730 (Version 1)
Quarter: 2023Q1

REPORT INFORMATION
  Report Type: Spontaneous
  Country: US (occurrence: US)
  Receive Date: 20230308
  Receipt Date: 20230308
  Transmission Date: 20230418
  Serious: Yes (Hospitalization)
  Sender: FDA-Public Use
  Company Number: US-TEVA-2023-US-2862315

PATIENT
  Age: 29 Year
  Sex: Male

DRUGS (1)
  1. ALBUTEROL\IPRATROPIUM [Suspect]
     Active Substance: ALBUTEROL\IPRATROPIUM
     Indication: Asthma
     Dosage: MULTIPLE ROUNDS , ADDITIONAL INFO: ROUTE: {INHALATION}
     Route: 050

REACTIONS (5)
  - Lactic acidosis [Recovered/Resolved]
  - Toxicity to various agents [Unknown]
  - Hypokalaemia [Recovered/Resolved]
  - Hypophosphataemia [Recovered/Resolved]
  - Hyperglycaemia [Recovered/Resolved]
